FAERS Safety Report 8218630 (Version 3)
Quarter: 2020Q3

REPORT INFORMATION
  Report Type: Spontaneous
  Country: PT (occurrence: PT)
  Receive Date: 20111101
  Receipt Date: 20200810
  Transmission Date: 20201103
  Serious: Yes (Other)
  Sender: FDA-Public Use
  Company Number: PT-BAXTER-2011BH032939

PATIENT
  Age: 63 Year
  Sex: Female
  Weight: 90 kg

DRUGS (20)
  1. SINVASTATINA [Concomitant]
     Active Substance: SIMVASTATIN
     Indication: PRODUCT USED FOR UNKNOWN INDICATION
     Route: 065
  2. SEVOFLURANO BAXTER 100% L?QUIDO PARA INALAC?O POR VAPORIZAC?O [Suspect]
     Active Substance: SEVOFLURANE
     Route: 055
     Dates: start: 20111014, end: 20111014
  3. PROPOFOL. [Suspect]
     Active Substance: PROPOFOL
     Indication: PRODUCT USED FOR UNKNOWN INDICATION
     Route: 042
     Dates: start: 20111014, end: 20111014
  4. PROPOFOL. [Suspect]
     Active Substance: PROPOFOL
     Indication: ANAESTHESIA
     Dosage: 150 MG, UNK
     Route: 065
  5. LORAZEPAM. [Suspect]
     Active Substance: LORAZEPAM
     Indication: PRODUCT USED FOR UNKNOWN INDICATION
     Route: 065
  6. XOMOLIX [Suspect]
     Active Substance: DROPERIDOL
     Indication: PRODUCT USED FOR UNKNOWN INDICATION
     Route: 042
     Dates: start: 20111014, end: 20111014
  7. MIANSERINE [Concomitant]
     Active Substance: MIANSERIN HYDROCHLORIDE
     Indication: PRODUCT USED FOR UNKNOWN INDICATION
     Route: 065
  8. INDAPAMIDE. [Concomitant]
     Active Substance: INDAPAMIDE
     Indication: PRODUCT USED FOR UNKNOWN INDICATION
     Route: 065
  9. VILDAGLIPTIN [Concomitant]
     Active Substance: VILDAGLIPTIN
     Indication: PRODUCT USED FOR UNKNOWN INDICATION
     Route: 065
  10. SUXAMETONIO LABESFAL [Suspect]
     Active Substance: SUCCINYLCHOLINE
     Indication: PRODUCT USED FOR UNKNOWN INDICATION
     Dosage: DRUG FORM:UNKNOWN
     Route: 042
     Dates: start: 20111014, end: 20111014
  11. ATRACURIUM HOSPIRA [Suspect]
     Active Substance: ATRACURIUM BESYLATE
     Indication: PRODUCT USED FOR UNKNOWN INDICATION
     Dosage: DRUG FORM:UNKNOWN
     Route: 042
     Dates: start: 20111014, end: 20111014
  12. FENTANYL WYNN [Suspect]
     Active Substance: FENTANYL
     Indication: PRODUCT USED FOR UNKNOWN INDICATION
     Dosage: DRUG FORM:UNKNOWN
     Route: 042
     Dates: start: 20111014, end: 20111014
  13. METFORMIN [Concomitant]
     Active Substance: METFORMIN HYDROCHLORIDE
     Indication: PRODUCT USED FOR UNKNOWN INDICATION
     Route: 065
  14. IRBESARTAN. [Concomitant]
     Active Substance: IRBESARTAN
     Indication: PRODUCT USED FOR UNKNOWN INDICATION
     Route: 065
  15. SEVOFLURANO BAXTER 100% L?QUIDO PARA INALAC?O POR VAPORIZAC?O [Suspect]
     Active Substance: SEVOFLURANE
     Indication: INDUCTION AND MAINTENANCE OF ANAESTHESIA
     Route: 055
     Dates: start: 20111014, end: 20111014
  16. MIDAZOLAM BAXTER [Suspect]
     Active Substance: MIDAZOLAM HYDROCHLORIDE
     Indication: ANAESTHESIA
     Dosage: 2.5 MG, UNK
     Route: 065
  17. PROPOFOL. [Suspect]
     Active Substance: PROPOFOL
     Dosage: 200 MG, UNK
     Route: 065
  18. XOMOLIX [Suspect]
     Active Substance: DROPERIDOL
     Dosage: DRUG FORM:UNKNOWN
     Route: 042
     Dates: start: 20111014, end: 20111014
  19. SEVOFLURANO BAXTER 100% L?QUIDO PARA INALAC?O POR VAPORIZAC?O [Suspect]
     Active Substance: SEVOFLURANE
     Route: 055
     Dates: start: 20111014, end: 20111014
  20. FENTANYL WYNN [Suspect]
     Active Substance: FENTANYL
     Indication: ANAESTHESIA
     Dosage: DRUG FORM:UNKNOWN
     Route: 042
     Dates: start: 20111014, end: 20111014

REACTIONS (3)
  - Drug tolerance [Unknown]
  - Drug ineffective [Recovered/Resolved]
  - Unwanted awareness during anaesthesia [Recovered/Resolved]

NARRATIVE: CASE EVENT DATE: 20111014
